FAERS Safety Report 6553177-6 (Version None)
Quarter: 2010Q1

REPORT INFORMATION
  Report Type: 
  Country: None (occurrence: None)
  Receive Date: 20100127
  Receipt Date: 20090305
  Transmission Date: 20100710
  Serious: No
  Sender: FDA-Public Use
  Company Number: A0771862A

PATIENT
  Age: 36 Year
  Sex: Female

DRUGS (4)
  1. IMITREX [Suspect]
     Indication: DRUG USE FOR UNKNOWN INDICATION
     Route: 042
     Dates: start: 20080101
  2. ADDERALL 10 [Concomitant]
  3. CITALOPRAM [Concomitant]
  4. MAXALT [Concomitant]

REACTIONS (1)
  - OVERDOSE [None]
